FAERS Safety Report 6244721-7 (Version None)
Quarter: 2009Q2

REPORT INFORMATION
  Report Type: 
  Country: None (occurrence: None)
  Receive Date: 20090623
  Receipt Date: 20090616
  Transmission Date: 20091009
  Serious: Yes (Other)
  Sender: FDA-Public Use
  Company Number: TPG2009A00616

PATIENT
  Age: 29 Year
  Sex: Female

DRUGS (6)
  1. ACTOS [Suspect]
     Indication: DIABETES MELLITUS
     Dosage: 30 MG, PER ORAL
     Route: 048
     Dates: start: 20060302, end: 20090415
  2. ACTOS [Suspect]
     Indication: HYPERGLYCAEMIA
     Dosage: 30 MG, PER ORAL
     Route: 048
     Dates: start: 20060302, end: 20090415
  3. PROVAS COMP (HYDROCHLOROTHIAZIDE, VALSARTAN) [Concomitant]
  4. CARVEDILOL [Concomitant]
  5. CIL (FENOFIBRATE) [Concomitant]
  6. JODTHYROX (LEVOTHYROXINE SODIUM, POTASSIUM IODIOE) [Concomitant]

REACTIONS (2)
  - FOREARM FRACTURE [None]
  - OSTEOPOROSIS [None]
